FAERS Safety Report 5806583-9 (Version None)
Quarter: 2008Q3

REPORT INFORMATION
  Report Type: 
  Country: None (occurrence: None)
  Receive Date: 20080710
  Receipt Date: 20080630
  Transmission Date: 20090109
  Serious: Yes (Other)
  Sender: FDA-Public Use
  Company Number: PHHY2008BB12637

PATIENT
  Age: 56 Year
  Sex: Male

DRUGS (3)
  1. ZOLEDRONIC ACID [Suspect]
     Dosage: 5 MG PER YEAR
     Route: 042
     Dates: start: 20080611
  2. INSULIN [Concomitant]
  3. EPILIUM [Concomitant]
     Dosage: 500 MG, BID
     Route: 048

REACTIONS (4)
  - CONFUSIONAL STATE [None]
  - DELIRIUM [None]
  - HYPOCALCAEMIA [None]
  - TETANY [None]
